FAERS Safety Report 9773772 (Version 1)
Quarter: 2013Q4

REPORT INFORMATION
  Report Type: Report from Study
  Country: GR (occurrence: GR)
  Receive Date: 20131219
  Receipt Date: 20131219
  Transmission Date: 20140711
  Serious: Yes (Death, Other)
  Sender: FDA-Public Use
  Company Number: GR-ROCHE-1321569

PATIENT
  Sex: 0

DRUGS (6)
  1. RITUXIMAB [Suspect]
     Indication: HAEMOLYTIC ANAEMIA
     Route: 065
  2. RITUXIMAB [Suspect]
     Indication: THROMBOTIC THROMBOCYTOPENIC PURPURA
     Route: 065
  3. RITUXIMAB [Suspect]
     Indication: EVANS SYNDROME
  4. RITUXIMAB [Suspect]
     Indication: ANTIPHOSPHOLIPID SYNDROME
  5. RITUXIMAB [Suspect]
     Indication: AUTOIMMUNE NEUTROPENIA
  6. RITUXIMAB [Suspect]
     Indication: THROMBOCYTOPENIA

REACTIONS (4)
  - Death [Fatal]
  - Hypersensitivity [Unknown]
  - Autoimmune disorder [Unknown]
  - Off label use [Unknown]
